FAERS Safety Report 9940661 (Version 5)
Quarter: 2014Q1

REPORT INFORMATION
  Report Type: Report from Study
  Country: JP (occurrence: JP)
  Receive Date: 20140303
  Receipt Date: 20140328
  Transmission Date: 20141002
  Serious: Yes (Other)
  Sender: FDA-Public Use
  Company Number: JP-PFIZER INC-2014058639

PATIENT
  Age: 66 Year
  Sex: Male

DRUGS (6)
  1. LANSOPRAZOLE [Suspect]
  2. AMLODIN [Concomitant]
     Dosage: UNK
  3. FAMOTIDINE [Concomitant]
  4. CILOSTAZOL [Concomitant]
  5. GLICLAZIDE [Concomitant]
  6. METFORMIN [Concomitant]

REACTIONS (1)
  - Colitis microscopic [Unknown]
